FAERS Safety Report 9500563 (Version 7)
Quarter: 2014Q1

REPORT INFORMATION
  Report Type: Spontaneous
  Country: US (occurrence: US)
  Receive Date: 20130905
  Receipt Date: 20140212
  Transmission Date: 20141002
  Serious: Yes (Death, Hospitalization, Disabling, Other)
  Sender: FDA-Public Use
  Company Number: US-MERCK-1309USA001620

PATIENT
  Sex: Female
  Weight: 197.28 kg

DRUGS (3)
  1. JANUVIA [Suspect]
     Indication: TYPE 2 DIABETES MELLITUS
     Dosage: 100 MG, QD
     Route: 048
     Dates: start: 200807, end: 20120619
  2. JANUMET [Suspect]
     Indication: TYPE 2 DIABETES MELLITUS
     Dosage: 50-500 MG
     Route: 048
     Dates: start: 200904, end: 201104
  3. JANUMET [Suspect]
     Dosage: 50-1000 MG
     Route: 048
     Dates: start: 20110413

REACTIONS (14)
  - Adenocarcinoma pancreas [Fatal]
  - Diabetes mellitus inadequate control [Unknown]
  - Biopsy pancreas [Unknown]
  - Pancreatic stent placement [Unknown]
  - Cholecystectomy [Unknown]
  - Pancreaticoduodenectomy [Unknown]
  - Impaired healing [Unknown]
  - Hypertension [Unknown]
  - Radiotherapy [Unknown]
  - Paraesthesia [Unknown]
  - Night sweats [Unknown]
  - Oedema peripheral [Unknown]
  - Dyspepsia [Unknown]
  - Diarrhoea [Unknown]
